FAERS Safety Report 10069188 (Version 1)
Quarter: 2014Q2

REPORT INFORMATION
  Report Type: Spontaneous
  Country: US (occurrence: US)
  Receive Date: 20140409
  Receipt Date: 20140409
  Transmission Date: 20141212
  Serious: No
  Sender: FDA-Public Use
  Company Number: US-ASTELLAS-2013US003956

PATIENT
  Sex: Female

DRUGS (2)
  1. PROTOPIC [Suspect]
     Indication: ECZEMA
     Dosage: UNK
     Route: 061
  2. PROTOPIC [Suspect]
     Dosage: 0.1 %, UID/QD
     Route: 061
     Dates: start: 201303

REACTIONS (3)
  - Paraesthesia [Unknown]
  - Pruritus [Unknown]
  - Acne [Unknown]
